FAERS Safety Report 14647664 (Version 1)
Quarter: 2018Q1

REPORT INFORMATION
  Report Type: Spontaneous
  Country: JP (occurrence: JP)
  Receive Date: 20180316
  Receipt Date: 20180316
  Transmission Date: 20180509
  Serious: Yes (Hospitalization, Other)
  Sender: FDA-Public Use
  Company Number: JP-GLAXOSMITHKLINE-JP2017JPN200780

PATIENT
  Age: 32 Year
  Sex: Female

DRUGS (5)
  1. LAMICTAL [Suspect]
     Active Substance: LAMOTRIGINE
     Indication: BIPOLAR II DISORDER
     Dosage: 25 MG, QD
     Route: 048
     Dates: start: 20111017, end: 20111122
  2. SENNA [Concomitant]
     Active Substance: SENNA LEAF\SENNOSIDES\SENNOSIDES A AND B
     Dosage: UNK
  3. DEPAKENE [Concomitant]
     Active Substance: VALPROIC ACID
     Indication: BIPOLAR II DISORDER
     Dosage: UNK
  4. MYSLEE TABLETS [Concomitant]
     Dosage: UNK
     Dates: end: 201111
  5. LIMAS [Concomitant]
     Active Substance: LITHIUM CARBONATE
     Dosage: UNK
     Dates: end: 201111

REACTIONS (6)
  - Headache [Recovered/Resolved]
  - Rash generalised [Recovered/Resolved]
  - Pyrexia [Recovered/Resolved]
  - Drug eruption [Recovered/Resolved]
  - Inappropriate schedule of drug administration [Unknown]
  - Chills [Recovered/Resolved]

NARRATIVE: CASE EVENT DATE: 2011
